FAERS Safety Report 25302663 (Version 1)
Quarter: 2025Q2

REPORT INFORMATION
  Report Type: Spontaneous
  Country: US (occurrence: US)
  Receive Date: 20250512
  Receipt Date: 20250512
  Transmission Date: 20250716
  Serious: No
  Sender: MERCK SHARP & DOHME LLC
  Company Number: US-009507513-2281990

PATIENT
  Sex: Female

DRUGS (1)
  1. VERICIGUAT [Suspect]
     Active Substance: VERICIGUAT
     Route: 048

REACTIONS (1)
  - Adverse event [Unknown]
